FAERS Safety Report 7932797-8 (Version None)
Quarter: 2011Q4

REPORT INFORMATION
  Report Type: 
  Country: None (occurrence: None)
  Receive Date: 20111122
  Receipt Date: 20111115
  Transmission Date: 20120403
  Serious: Yes (Hospitalization)
  Sender: FDA-Public Use
  Company Number: US-BRISTOL-MYERS SQUIBB COMPANY-16232464

PATIENT
  Age: 53 Year
  Sex: Male

DRUGS (1)
  1. COUMADIN [Suspect]
     Dosage: DOSE INCREASED TO 7.5MG.
     Dates: start: 20110827

REACTIONS (2)
  - HERNIA [None]
  - OEDEMA PERIPHERAL [None]
